FAERS Safety Report 4266182-X (Version None)
Quarter: 2004Q1

REPORT INFORMATION
  Report Type: 
  Country: None (occurrence: None)
  Receive Date: 20040106
  Receipt Date: 20031222
  Transmission Date: 20041129
  Serious: Yes (Life-Threatening, Hospitalization)
  Sender: FDA-Public Use
  Company Number: 2003-DE-01909GD

PATIENT
  Age: 58 Year
  Sex: Female

DRUGS (6)
  1. LITHIUM CARBONATE [Suspect]
     Indication: BIPOLAR I DISORDER
     Dosage: 210 MG (NR, IN THE MORINING AND AT NIGHT)
  2. CELECOXIB (ANTIINFLAMMATORY/ANTIRHEUMATIC PRODUCTS) [Suspect]
     Dosage: 800 MG (NR, TWICE DAILY)
  3. SERTRALINE (SERTRALINE) (SERTRALINE-HCL) [Concomitant]
  4. IBUPROFEN [Concomitant]
  5. LEVOMEPROMAZINE (LEVOMEPROMAZINE) [Concomitant]
  6. ESOMEPRAZOLE (DRUGS FOR TREATMENT OF PEPTIC ULCER) [Concomitant]

REACTIONS (12)
  - ABDOMINAL PAIN [None]
  - BLOOD CREATINE INCREASED [None]
  - BRADYCARDIA [None]
  - DRUG INTERACTION [None]
  - HAEMODIALYSIS [None]
  - HYPOTENSION [None]
  - MALAISE [None]
  - NAUSEA [None]
  - RENAL IMPAIRMENT [None]
  - SINOATRIAL BLOCK [None]
  - SOMNOLENCE [None]
  - THERAPEUTIC AGENT TOXICITY [None]
